FAERS Safety Report 7343730-4 (Version None)
Quarter: 2011Q1

REPORT INFORMATION
  Report Type: 
  Country: None (occurrence: None)
  Receive Date: 20110310
  Receipt Date: 20101209
  Transmission Date: 20110831
  Serious: No
  Sender: FDA-Public Use
  Company Number: A0898872A

PATIENT
  Age: 56 Year
  Sex: Male

DRUGS (1)
  1. NICORETTE [Suspect]
     Dates: start: 20101027

REACTIONS (2)
  - ABNORMAL FAECES [None]
  - URINE ODOUR ABNORMAL [None]
